FAERS Safety Report 5419643-1 (Version None)
Quarter: 2007Q3

REPORT INFORMATION
  Report Type: 
  Country: None (occurrence: None)
  Receive Date: 20070820
  Receipt Date: 20070813
  Transmission Date: 20080115
  Serious: Yes (Other)
  Sender: FDA-Public Use
  Company Number: PHBS2007BE13492

PATIENT
  Age: 46 Year
  Sex: Female

DRUGS (8)
  1. CELEBREX [Concomitant]
     Dates: end: 20070810
  2. CLONAZEPAM [Concomitant]
  3. ALPRAZOLAM [Concomitant]
  4. OMEPRAZOLE [Concomitant]
  5. CONTRAMAL [Concomitant]
  6. HOMEOPATHIC PREPARATIONS [Concomitant]
     Indication: ANGIOPATHY
  7. MIACALCIN [Suspect]
     Indication: COMPLEX REGIONAL PAIN SYNDROME
     Dosage: 50 IU/DAY
     Route: 058
     Dates: start: 20070708
  8. MIACALCIN [Suspect]
     Dosage: 100 IU/DAY
     Route: 058

REACTIONS (6)
  - BURN DRESSING [None]
  - BURNS SECOND DEGREE [None]
  - FALL [None]
  - MALAISE [None]
  - NAUSEA [None]
  - WOUND COMPLICATION [None]
